FAERS Safety Report 5412606-1 (Version None)
Quarter: 2007Q3

REPORT INFORMATION
  Report Type: 
  Country: None (occurrence: None)
  Receive Date: 20070713
  Receipt Date: 20070314
  Transmission Date: 20080115
  Serious: Yes (Hospitalization, Other)
  Sender: FDA-Public Use
  Company Number: US-JNJFOC-20060904183

PATIENT
  Age: 26 Year
  Sex: Female

DRUGS (5)
  1. ORTHO EVRA [Suspect]
     Indication: DYSFUNCTIONAL UTERINE BLEEDING
     Dosage: TRANSDERMAL
     Route: 062
     Dates: start: 20040801
  2. HALDOL [Concomitant]
  3. RISPERDAL [Concomitant]
  4. COGENTIN [Concomitant]
  5. ZYPREXA [Concomitant]

REACTIONS (2)
  - DEEP VEIN THROMBOSIS [None]
  - PULMONARY EMBOLISM [None]
